FAERS Safety Report 10615367 (Version 1)
Quarter: 2014Q4

REPORT INFORMATION
  Report Type: Spontaneous
  Country: US (occurrence: US)
  Receive Date: 20141201
  Receipt Date: 20141201
  Transmission Date: 20150529
  Serious: No
  Sender: FDA-Public Use
  Company Number: US-PFIZER INC-2014324817

PATIENT
  Age: 54 Year
  Sex: Female

DRUGS (1)
  1. ZITHROMAX [Suspect]
     Active Substance: AZITHROMYCIN DIHYDRATE
     Dosage: 250 MG, DAILY (TAKE 2 TABLETS STAT, THEN 1 TABLET BY MOUTH DAILY)
     Route: 048

REACTIONS (1)
  - Drug ineffective [Unknown]
